FAERS Safety Report 9515917 (Version 2)
Quarter: 2013Q3

REPORT INFORMATION
  Report Type: Report from Study
  Country: CA (occurrence: CA)
  Receive Date: 20130911
  Receipt Date: 20130927
  Transmission Date: 20140515
  Serious: Yes (Hospitalization, Other)
  Sender: FDA-Public Use
  Company Number: CA-JNJFOC-20130902852

PATIENT
  Age: 38 Year
  Sex: Female
  Weight: 45.36 kg

DRUGS (5)
  1. REMICADE [Suspect]
     Indication: CROHN^S DISEASE
     Route: 042
     Dates: start: 20100304
  2. REMICADE [Suspect]
     Indication: CROHN^S DISEASE
     Route: 042
     Dates: start: 201201
  3. REMICADE [Suspect]
     Indication: CROHN^S DISEASE
     Route: 042
     Dates: start: 201207, end: 201207
  4. BENOCYCLIDINE [Concomitant]
     Route: 065
  5. TECTA [Concomitant]
     Route: 065

REACTIONS (3)
  - Exploratory operation [Recovering/Resolving]
  - Fistula [Recovered/Resolved]
  - Postoperative abscess [Unknown]
